FAERS Safety Report 7682278 (Version 5)
Quarter: 2013Q3

REPORT INFORMATION
  Report Type: Spontaneous
  Country: US (occurrence: US)
  Receive Date: 20101124
  Receipt Date: 20130912
  Transmission Date: 20140515
  Serious: Yes (Hospitalization, Other)
  Sender: FDA-Public Use
  Company Number: US-ROCHE-722559

PATIENT
  Age: 27 Year
  Sex: Female
  Weight: 73.9 kg

DRUGS (3)
  1. ACCUTANE [Suspect]
     Indication: PSORIASIS
     Route: 065
  2. ACCUTANE [Suspect]
     Route: 065
     Dates: start: 20030507, end: 2004
  3. UREA CREAM [Concomitant]

REACTIONS (3)
  - Crohn^s disease [Unknown]
  - Inflammatory bowel disease [Unknown]
  - Intestinal stenosis [Unknown]
